FAERS Safety Report 9137524 (Version 1)
Quarter: 2013Q1

REPORT INFORMATION
  Report Type: Spontaneous
  Country: US (occurrence: US)
  Receive Date: 20130304
  Receipt Date: 20130304
  Transmission Date: 20140127
  Serious: Yes (Hospitalization)
  Sender: FDA-Public Use
  Company Number: US-BRISTOL-MYERS SQUIBB COMPANY-17418328

PATIENT
  Age: 85 Year
  Sex: Male

DRUGS (3)
  1. AVALIDE [Suspect]
     Indication: BLOOD PRESSURE MANAGEMENT
     Dosage: 1DF:300/12.5MG
  2. VERAPAMIL [Concomitant]
  3. LISINOPRIL [Concomitant]

REACTIONS (3)
  - Syncope [Recovered/Resolved]
  - Head injury [Recovered/Resolved]
  - Laceration [Recovered/Resolved]
